FAERS Safety Report 20534729 (Version 2)
Quarter: 2022Q1

REPORT INFORMATION
  Report Type: Report from Study
  Country: US (occurrence: US)
  Receive Date: 20220302
  Receipt Date: 20220311
  Transmission Date: 20220423
  Serious: Yes (Other)
  Sender: FDA-Public Use
  Company Number: US-JNJFOC-20220244773

PATIENT
  Age: 57 Year
  Sex: Female

DRUGS (1)
  1. PONVORY [Suspect]
     Active Substance: PONESIMOD
     Indication: Relapsing-remitting multiple sclerosis
     Route: 048
     Dates: start: 20220217

REACTIONS (6)
  - Mental impairment [Recovered/Resolved]
  - Dizziness [Unknown]
  - Sluggishness [Recovered/Resolved]
  - Nausea [Unknown]
  - Headache [Not Recovered/Not Resolved]
  - Euphoric mood [Recovered/Resolved]

NARRATIVE: CASE EVENT DATE: 20220217
